FAERS Safety Report 16121189 (Version 2)
Quarter: 2024Q4

REPORT INFORMATION
  Report Type: Spontaneous
  Country: DK (occurrence: DK)
  Receive Date: 20190327
  Receipt Date: 20241121
  Transmission Date: 20250115
  Serious: Yes (Other)
  Sender: ACCORD
  Company Number: None

PATIENT
  Age: 75 Year
  Sex: Female

DRUGS (3)
  1. MYCOPHENOLATE MOFETIL [Suspect]
     Active Substance: MYCOPHENOLATE MOFETIL
     Indication: Dermatitis atopic
     Route: 065
  2. CYCLOSPORINE [Suspect]
     Active Substance: CYCLOSPORINE
     Indication: Dermatitis atopic
     Dosage: 2-3 MG/KG, (1.5-2.5 MG/KG/DAY)
     Route: 065
  3. AZATHIOPRINE [Suspect]
     Active Substance: AZATHIOPRINE
     Indication: Dermatitis atopic

REACTIONS (13)
  - Lymphadenopathy [Unknown]
  - Neutrophilia [Unknown]
  - Leukocytosis [Unknown]
  - Lymphocyte morphology abnormal [Unknown]
  - Blood immunoglobulin E increased [Unknown]
  - Lymphocyte count increased [Not Recovered/Not Resolved]
  - Cutaneous T-cell lymphoma [Not Recovered/Not Resolved]
  - Condition aggravated [Unknown]
  - Eczema [Not Recovered/Not Resolved]
  - Drug ineffective [Unknown]
  - Dermatitis [Not Recovered/Not Resolved]
  - Pruritus [Recovered/Resolved]
  - Dermatitis exfoliative generalised [Not Recovered/Not Resolved]
